FAERS Safety Report 15809982 (Version 1)
Quarter: 2019Q1

REPORT INFORMATION
  Report Type: Spontaneous
  Country: IT (occurrence: IT)
  Receive Date: 20190111
  Receipt Date: 20190111
  Transmission Date: 20190417
  Serious: Yes (Hospitalization)
  Sender: FDA-Public Use
  Company Number: IT-TEVA-2019-IT-997354

PATIENT
  Age: 84 Year
  Sex: Male
  Weight: 75 kg

DRUGS (3)
  1. BRUFEN [Suspect]
     Active Substance: IBUPROFEN
     Indication: ARTHRALGIA
     Route: 048
     Dates: start: 20181129, end: 20181130
  2. ACETYLSALICYLIC ACID [Suspect]
     Active Substance: ASPIRIN
     Route: 048
  3. CLOPIDOGREL [Suspect]
     Active Substance: CLOPIDOGREL BISULFATE
     Route: 048

REACTIONS (2)
  - Ulcer haemorrhage [Recovered/Resolved]
  - Drug interaction [Recovered/Resolved]

NARRATIVE: CASE EVENT DATE: 20181130
